FAERS Safety Report 7237222-0 (Version None)
Quarter: 2011Q1

REPORT INFORMATION
  Report Type: 
  Country: None (occurrence: None)
  Receive Date: 20110121
  Receipt Date: 20110110
  Transmission Date: 20110831
  Serious: Yes (Death)
  Sender: FDA-Public Use
  Company Number: US-ELI_LILLY_AND_COMPANY-US201011003558

PATIENT
  Sex: Male
  Weight: 73.016 kg

DRUGS (9)
  1. PREDNISONE [Concomitant]
     Dosage: UNK, UNKNOWN
     Route: 065
  2. RISPERDAL [Concomitant]
     Dosage: UNK, UNKNOWN
     Route: 065
  3. VICODIN [Concomitant]
     Dosage: UNK, UNKNOWN
     Route: 065
  4. FORTEO [Suspect]
     Indication: OSTEOPOROSIS
     Dosage: UNK, DAILY (1/D)
     Route: 058
     Dates: start: 20101001, end: 20101026
  5. OMEPRAZOLE [Concomitant]
     Dosage: UNK, UNKNOWN
     Route: 065
  6. LEVOXYL [Concomitant]
     Dosage: UNK, UNKNOWN
     Route: 065
  7. ANDRODERM [Concomitant]
     Dosage: UNK, UNKNOWN
     Route: 065
  8. MAXZIDE [Concomitant]
     Dosage: 25 UNK, UNKNOWN
     Route: 065
  9. ZOCOR [Concomitant]
     Dosage: UNK, UNKNOWN
     Route: 065

REACTIONS (2)
  - PNEUMONIA ASPIRATION [None]
  - SEPSIS [None]
